FAERS Safety Report 6475927-X (Version None)
Quarter: 2009Q4

REPORT INFORMATION
  Report Type: 
  Country: None (occurrence: None)
  Receive Date: 20091204
  Receipt Date: 20091118
  Transmission Date: 20100525
  Serious: Yes (Death, Hospitalization)
  Sender: FDA-Public Use
  Company Number: CL-SANOFI-AVENTIS-200922183GDDC

PATIENT
  Age: 69 Year
  Sex: Male
  Weight: 78.9 kg

DRUGS (20)
  1. AFLIBERCEPT [Suspect]
     Indication: PROSTATE CANCER METASTATIC
     Route: 042
     Dates: start: 20091028, end: 20091028
  2. DOCETAXEL [Suspect]
     Indication: PROSTATE CANCER METASTATIC
     Route: 042
     Dates: start: 20091028, end: 20091028
  3. PREDNISONE [Suspect]
     Indication: PROSTATE CANCER METASTATIC
     Route: 048
     Dates: start: 20090805, end: 20091028
  4. ZOLADEX [Concomitant]
     Indication: HORMONE REPLACEMENT THERAPY
     Dates: start: 20080912
  5. ANTITHROMBOTIC AGENTS [Concomitant]
     Dates: start: 20080913
  6. METFORMIN HCL [Concomitant]
     Dates: start: 19990101
  7. GLIBENCLAMIDE [Concomitant]
     Dates: start: 19990101
  8. EUTIROX [Concomitant]
     Dates: start: 20080801
  9. ATORVASTATIN [Concomitant]
     Dates: start: 20090825
  10. ONDANSETRON [Concomitant]
     Dosage: FREQUENCY: CYCLICALLY
     Dates: start: 20090805, end: 20091007
  11. RANITIDINE [Concomitant]
     Dosage: FREQUENCY: CYCLICALLY
     Dates: start: 20090805, end: 20091007
  12. CHLORPHENIRAMINE MALEATE [Concomitant]
     Dosage: FREQUENCY: CYCLICALLY
     Dates: start: 20090805, end: 20091007
  13. DEXAMETHASONE TAB [Concomitant]
     Dosage: FREQUENCY: CYCLICALLY
     Dates: start: 20090805, end: 20091007
  14. SODIUM BICARBONATE IN PLASTIC CONTAINER [Concomitant]
     Dates: start: 20090915
  15. FUROSEMIDE [Concomitant]
  16. ESPIRONOLACTONA [Concomitant]
  17. DIGOXIN [Concomitant]
  18. CARVEDILOL [Concomitant]
  19. CAPTOPRIL [Concomitant]
  20. GELCLAIR [Concomitant]
     Route: 065
     Dates: start: 20091006

REACTIONS (2)
  - CARDIAC FAILURE CONGESTIVE [None]
  - LUNG DISORDER [None]
